FAERS Safety Report 18512710 (Version 10)
Quarter: 2025Q4

REPORT INFORMATION
  Report Type: Report from Study
  Country: US (occurrence: US)
  Receive Date: 20201117
  Receipt Date: 20251218
  Transmission Date: 20260119
  Serious: Yes (Other)
  Sender: TAKEDA
  Company Number: US-SHIRE-US202012626

PATIENT
  Age: 67 Year
  Sex: Female

DRUGS (4)
  1. HUMAN IMMUNOGLOBULIN G [Suspect]
     Active Substance: HUMAN IMMUNOGLOBULIN G
     Indication: Hypogammaglobulinaemia
     Dosage: 30 GRAM, Q2WEEKS
     Dates: start: 201810
  2. HUMAN IMMUNOGLOBULIN G [Suspect]
     Active Substance: HUMAN IMMUNOGLOBULIN G
     Indication: Immunodeficiency common variable
     Dosage: UNK
  3. HUMAN IMMUNOGLOBULIN G [Suspect]
     Active Substance: HUMAN IMMUNOGLOBULIN G
     Indication: Primary immunodeficiency syndrome
  4. HIZENTRA [Concomitant]
     Active Substance: HUMAN IMMUNOGLOBULIN G
     Indication: Product used for unknown indication
     Dosage: UNK

REACTIONS (41)
  - Suspected COVID-19 [Unknown]
  - Pneumonia [Unknown]
  - Rheumatoid arthritis [Not Recovered/Not Resolved]
  - Clostridium difficile infection [Unknown]
  - Autoimmune disorder [Unknown]
  - Alopecia [Unknown]
  - Abscess [Unknown]
  - Exposure to toxic agent [Unknown]
  - Blood testosterone increased [Unknown]
  - Loose tooth [Unknown]
  - Skin odour abnormal [Unknown]
  - Abscess oral [Unknown]
  - Spinal pain [Not Recovered/Not Resolved]
  - Hormone level abnormal [Not Recovered/Not Resolved]
  - Inflammation [Unknown]
  - Fibromyalgia [Not Recovered/Not Resolved]
  - Fungal infection [Unknown]
  - Scar pain [Unknown]
  - Spinal disorder [Unknown]
  - Staphylococcal infection [Not Recovered/Not Resolved]
  - Obstruction [Unknown]
  - Insurance issue [Unknown]
  - Upper-airway cough syndrome [Unknown]
  - Product use issue [Unknown]
  - Inappropriate schedule of product administration [Unknown]
  - Breast discharge [Unknown]
  - Fall [Unknown]
  - Mass [Unknown]
  - Joint injury [Unknown]
  - Irritability [Unknown]
  - Oxygen saturation decreased [Unknown]
  - Anxiety [Unknown]
  - Cough [Unknown]
  - Malaise [Unknown]
  - Pain [Not Recovered/Not Resolved]
  - Dyspnoea [Unknown]
  - Pyrexia [Unknown]
  - Nausea [Unknown]
  - Fatigue [Unknown]
  - Benign neoplasm [Unknown]
  - Arthralgia [Unknown]

NARRATIVE: CASE EVENT DATE: 20201106
